FAERS Safety Report 5124947-6 (Version None)
Quarter: 2006Q4

REPORT INFORMATION
  Report Type: 
  Country: None (occurrence: None)
  Receive Date: 20061011
  Receipt Date: 20061004
  Transmission Date: 20070319
  Serious: Yes (Other)
  Sender: FDA-Public Use
  Company Number: FR-ALLERGAN-0605898US

PATIENT
  Age: 24 Year
  Sex: Male

DRUGS (2)
  1. BOTOX 100 UNITS [Suspect]
     Indication: HYPERTONIC BLADDER
     Dosage: 300 UNITS, SINGLE
     Route: 043
  2. XYLOCAINE                          /00033401/ [Concomitant]
     Indication: DRUG USE FOR UNKNOWN INDICATION

REACTIONS (5)
  - ASTHMATIC CRISIS [None]
  - CARDIAC ARREST [None]
  - CYANOSIS [None]
  - PULSE ABSENT [None]
  - RESPIRATORY ARREST [None]
